FAERS Safety Report 4702844-5 (Version None)
Quarter: 2005Q2

REPORT INFORMATION
  Report Type: 
  Country: None (occurrence: None)
  Receive Date: 20050629
  Receipt Date: 20050624
  Transmission Date: 20051028
  Serious: Yes (Other)
  Sender: FDA-Public Use
  Company Number: PHEH2005US07153

PATIENT
  Age: 84 Year
  Sex: Female

DRUGS (7)
  1. LOTENSIN [Suspect]
     Indication: HYPERTENSION
     Dosage: 20 MG, QD
     Dates: start: 20000101
  2. AMITRIPTYLINE HCL [Concomitant]
  3. DICYCLOMINE [Concomitant]
  4. ZANTAC [Concomitant]
  5. NORVASC [Concomitant]
  6. HYDROCHLOROTHIAZIDE [Concomitant]
  7. ASPIRIN [Concomitant]

REACTIONS (6)
  - EXTRASYSTOLES [None]
  - HEART RATE DECREASED [None]
  - HEART RATE INCREASED [None]
  - HEART RATE IRREGULAR [None]
  - OESOPHAGEAL ULCER [None]
  - OESOPHAGITIS [None]
